FAERS Safety Report 9092667 (Version 1)
Quarter: 2013Q1

REPORT INFORMATION
  Report Type: Spontaneous
  Country: US (occurrence: US)
  Receive Date: 20130201
  Receipt Date: 20130201
  Transmission Date: 20140127
  Serious: No
  Sender: FDA-Public Use
  Company Number: US-BAYER-2013-006509

PATIENT
  Age: 22 Year
  Sex: Female
  Weight: 67 kg

DRUGS (1)
  1. ALEVE CAPLET/TABLET,MIDOL EXTENDED RELIEF CAPLET [Suspect]
     Indication: DYSMENORRHOEA
     Dosage: UNK
     Dates: start: 20120104

REACTIONS (5)
  - Overdose [None]
  - Inappropriate schedule of drug administration [None]
  - Headache [Recovered/Resolved]
  - Disorientation [Recovered/Resolved]
  - Eye movement disorder [Recovered/Resolved]
